FAERS Safety Report 23932427 (Version 1)
Quarter: 2024Q2

REPORT INFORMATION
  Report Type: Other
  Country: US (occurrence: None)
  Receive Date: 20240603
  Receipt Date: 20240603
  Transmission Date: 20240716
  Serious: Yes (Hospitalization, Other)
  Sender: FDA-Public Use
  Company Number: US-ROCHE-2980725

PATIENT
  Age: 43 Year
  Sex: Female
  Weight: 90.8 kg

DRUGS (18)
  1. OCREVUS [Suspect]
     Active Substance: OCRELIZUMAB
     Indication: Relapsing-remitting multiple sclerosis
     Dosage: DOT: 01/AUG/2022, 27/MAR/2023, 11/SEP/2023
     Route: 042
     Dates: start: 20211221
  2. OCREVUS [Suspect]
     Active Substance: OCRELIZUMAB
     Route: 042
     Dates: start: 2016
  3. OCREVUS [Suspect]
     Active Substance: OCRELIZUMAB
     Route: 042
     Dates: start: 20220711
  4. ALBUTEROL [Concomitant]
     Active Substance: ALBUTEROL
  5. BACLOFEN [Concomitant]
     Active Substance: BACLOFEN
  6. FLUOXETINE [Concomitant]
     Active Substance: FLUOXETINE HYDROCHLORIDE
  7. GABAPENTIN [Concomitant]
     Active Substance: GABAPENTIN
     Route: 048
  8. NAPROXEN [Concomitant]
     Active Substance: NAPROXEN
     Route: 048
  9. TEMAZEPAM [Concomitant]
     Active Substance: TEMAZEPAM
  10. NYSTATIN [Concomitant]
     Active Substance: NYSTATIN
  11. MUPIROCIN [Concomitant]
     Active Substance: MUPIROCIN
  12. MIRABEGRON [Concomitant]
     Active Substance: MIRABEGRON
  13. ALBUTEROL\IPRATROPIUM [Concomitant]
     Active Substance: ALBUTEROL\IPRATROPIUM
  14. FLUTICASONE [Concomitant]
     Active Substance: FLUTICASONE
  15. BACLOFEN [Concomitant]
     Active Substance: BACLOFEN
     Route: 048
  16. BUDESONIDE\FORMOTEROL [Concomitant]
     Active Substance: BUDESONIDE\FORMOTEROL
  17. AMITRIPTYLINE [Concomitant]
     Active Substance: AMITRIPTYLINE
     Route: 048
  18. AMPYRA [Concomitant]
     Active Substance: DALFAMPRIDINE
     Route: 048

REACTIONS (20)
  - Appetite disorder [Unknown]
  - Asthenia [Unknown]
  - Hypoaesthesia [Unknown]
  - Gait disturbance [Unknown]
  - Fall [Unknown]
  - Cerebral haemorrhage [Recovered/Resolved]
  - Drug ineffective [Unknown]
  - Headache [Unknown]
  - Head injury [Unknown]
  - Muscle spasms [Not Recovered/Not Resolved]
  - Anxiety [Unknown]
  - Insomnia [Unknown]
  - Chest pain [Unknown]
  - Dyspnoea [Unknown]
  - Back pain [Unknown]
  - Obesity [Unknown]
  - Leukocytosis [Unknown]
  - Acute respiratory failure [Unknown]
  - Lactic acidosis [Unknown]
  - Pneumonia [Unknown]

NARRATIVE: CASE EVENT DATE: 20240514
